FAERS Safety Report 11380861 (Version 1)
Quarter: 2015Q3

REPORT INFORMATION
  Report Type: Spontaneous
  Country: US (occurrence: None)
  Receive Date: 20150813
  Receipt Date: 20150813
  Transmission Date: 20151125
  Serious: No
  Sender: FDA-Public Use
  Company Number: None

PATIENT
  Age: 62 Year
  Sex: Female

DRUGS (1)
  1. KYNAMRO [Suspect]
     Active Substance: MIPOMERSEN SODIUM
     Indication: HYPERCHOLESTEROLAEMIA
     Route: 058
     Dates: start: 20150708

REACTIONS (4)
  - Influenza like illness [None]
  - Fatigue [None]
  - Weight increased [None]
  - Faeces discoloured [None]

NARRATIVE: CASE EVENT DATE: 20150710
